FAERS Safety Report 16309817 (Version 1)
Quarter: 2019Q2

REPORT INFORMATION
  Report Type: Spontaneous
  Country: None (occurrence: US)
  Receive Date: 20190514
  Receipt Date: 20190514
  Transmission Date: 20190711
  Serious: Yes (Other)
  Sender: FDA-Public Use
  Company Number: US-X-GEN PHARMACEUTICALS, INC-2066961

PATIENT

DRUGS (1)
  1. AMPHOTERICIN B. [Suspect]
     Active Substance: AMPHOTERICIN B

REACTIONS (3)
  - Renal disorder [Unknown]
  - Product complaint [Unknown]
  - Renal failure [Unknown]
